FAERS Safety Report 17861779 (Version 3)
Quarter: 2020Q3

REPORT INFORMATION
  Report Type: Spontaneous
  Country: GR (occurrence: GR)
  Receive Date: 20200604
  Receipt Date: 20200730
  Transmission Date: 20201103
  Serious: Yes (Other)
  Sender: FDA-Public Use
  Company Number: GR-PFIZER INC-2020215541

PATIENT
  Age: 76 Year
  Sex: Male

DRUGS (8)
  1. SOLU?MEDROL [Suspect]
     Active Substance: METHYLPREDNISOLONE SODIUM SUCCINATE
     Dosage: 1 G, DAILY
  2. PARIET [Concomitant]
     Active Substance: RABEPRAZOLE SODIUM
  3. KEYTRUDA [Concomitant]
     Active Substance: PEMBROLIZUMAB
     Indication: LUNG ADENOCARCINOMA
     Dosage: 200 MG, CYCLIC (1 CYCLE COMBINATION OF PEMBROLIZUMAB + CARBOPLATIN + PEMETREXED)
     Dates: start: 20200316
  4. FILICINE [Concomitant]
     Active Substance: FOLIC ACID
     Dosage: UNK
  5. CARBOPLATIN/PEMETREXED DISODIUM [Concomitant]
     Dosage: 1 CYCLE COMBINATION OF PEMBROLIZUMAB + CARBOPLATIN + PEMETREXED
  6. LIPITOR [Concomitant]
     Active Substance: ATORVASTATIN CALCIUM
     Dosage: UNK
  7. CATAPRES?TTS [Concomitant]
     Active Substance: CLONIDINE
     Dosage: UNK
  8. CARBOPLATIN/PEMETREXED DISODIUM [Concomitant]
     Indication: LUNG ADENOCARCINOMA
     Dosage: 4 CHEMOTHERAPY CYCLES

REACTIONS (2)
  - Incorrect dose administered [Recovered/Resolved]
  - Steroid diabetes [Recovered/Resolved]

NARRATIVE: CASE EVENT DATE: 20200330
